FAERS Safety Report 23225003 (Version 1)
Quarter: 2023Q4

REPORT INFORMATION
  Report Type: Other
  Country: US (occurrence: None)
  Receive Date: 20231124
  Receipt Date: 20231124
  Transmission Date: 20240109
  Serious: Yes (Other)
  Sender: FDA-Public Use
  Company Number: US-ROCHE-3461773

PATIENT

DRUGS (17)
  1. RITUXIMAB [Suspect]
     Active Substance: RITUXIMAB
     Indication: Progressive multiple sclerosis
     Route: 042
  2. OCRELIZUMAB [Suspect]
     Active Substance: OCRELIZUMAB
     Indication: Progressive multiple sclerosis
     Route: 065
  3. NATALIZUMAB [Suspect]
     Active Substance: NATALIZUMAB
     Indication: Progressive multiple sclerosis
     Route: 065
  4. ALEMTUZUMAB [Suspect]
     Active Substance: ALEMTUZUMAB
     Indication: Progressive multiple sclerosis
     Route: 065
  5. MITOXANTRONE [Suspect]
     Active Substance: MITOXANTRONE HYDROCHLORIDE
     Indication: Progressive multiple sclerosis
     Route: 065
  6. DIMETHYL FUMARATE [Suspect]
     Active Substance: DIMETHYL FUMARATE
     Indication: Progressive multiple sclerosis
     Route: 048
  7. FINGOLIMOD [Suspect]
     Active Substance: FINGOLIMOD
     Indication: Progressive multiple sclerosis
     Route: 048
  8. TERIFLUNOMIDE [Suspect]
     Active Substance: TERIFLUNOMIDE
     Indication: Progressive multiple sclerosis
     Route: 048
  9. SIPONIMOD [Suspect]
     Active Substance: SIPONIMOD
     Indication: Progressive multiple sclerosis
     Route: 048
  10. DIROXIMEL FUMARATE [Suspect]
     Active Substance: DIROXIMEL FUMARATE
     Indication: Progressive multiple sclerosis
     Route: 048
  11. CLADRIBINE [Suspect]
     Active Substance: CLADRIBINE
     Indication: Progressive multiple sclerosis
     Route: 048
  12. OZANIMOD [Suspect]
     Active Substance: OZANIMOD
     Indication: Progressive multiple sclerosis
     Route: 048
  13. INTERFERON BETA-1A [Suspect]
     Active Substance: INTERFERON BETA-1A
     Indication: Progressive multiple sclerosis
     Route: 065
  14. PEGINTERFERON BETA-1A [Suspect]
     Active Substance: PEGINTERFERON BETA-1A
     Indication: Progressive multiple sclerosis
     Route: 065
  15. GLATIRAMER ACETATE [Suspect]
     Active Substance: GLATIRAMER ACETATE
     Indication: Progressive multiple sclerosis
     Route: 065
  16. INTERFERON BETA-1B [Suspect]
     Active Substance: INTERFERON BETA-1B
     Indication: Progressive multiple sclerosis
     Route: 065
  17. OFATUMUMAB [Suspect]
     Active Substance: OFATUMUMAB
     Indication: Progressive multiple sclerosis
     Route: 065

REACTIONS (15)
  - Progressive multifocal leukoencephalopathy [Unknown]
  - Urinary tract infection [Unknown]
  - Lymphopenia [Unknown]
  - Cardiac disorder [Unknown]
  - Headache [Unknown]
  - Rash [Unknown]
  - Urticaria [Unknown]
  - Pyrexia [Unknown]
  - Nausea [Unknown]
  - Sleep deficit [Unknown]
  - Fatigue [Unknown]
  - Injection site reaction [Unknown]
  - Influenza like illness [Unknown]
  - Liver function test abnormal [Unknown]
  - JC virus infection [Unknown]
